FAERS Safety Report 9395920 (Version 3)
Quarter: 2013Q3

REPORT INFORMATION
  Report Type: Spontaneous
  Country: JP (occurrence: JP)
  Receive Date: 20130711
  Receipt Date: 20130809
  Transmission Date: 20140515
  Serious: Yes (Hospitalization, Other)
  Sender: FDA-Public Use
  Company Number: JP-BAYER-2013-081982

PATIENT
  Age: 68 Year
  Sex: Male

DRUGS (2)
  1. NIFEDIPINE [Suspect]
     Dosage: UNK
     Route: 048
  2. DILTIAZEM HYDROCHLORIDE [Interacting]
     Route: 048

REACTIONS (2)
  - Acute pulmonary oedema [Recovering/Resolving]
  - Drug interaction [None]
